FAERS Safety Report 15855864 (Version 1)
Quarter: 2019Q1

REPORT INFORMATION
  Report Type: Spontaneous
  Country: None (occurrence: CO)
  Receive Date: 20190122
  Receipt Date: 20190122
  Transmission Date: 20190417
  Serious: Yes (Other)
  Sender: FDA-Public Use
  Company Number: CO-POPULATION COUNCIL, INC.-2061592

PATIENT
  Age: 23 Year
  Sex: Female

DRUGS (1)
  1. JADELLE [Suspect]
     Active Substance: LEVONORGESTREL
     Route: 059
     Dates: start: 20181206

REACTIONS (3)
  - Menorrhagia [Not Recovered/Not Resolved]
  - Perineal pain [None]
  - Dermatitis [None]

NARRATIVE: CASE EVENT DATE: 20181226
